FAERS Safety Report 10420281 (Version 1)
Quarter: 2014Q3

REPORT INFORMATION
  Report Type: Spontaneous
  Country: US (occurrence: None)
  Receive Date: 20140701
  Receipt Date: 20140701
  Transmission Date: 20150326
  Serious: No
  Sender: FDA-Public Use
  Company Number: 1000067210

PATIENT
  Age: 75 Year
  Sex: Female

DRUGS (7)
  1. GLIMEPIRIDE. [Concomitant]
     Active Substance: GLIMEPIRIDE
  2. HYDROCHLOROTHIAZIDE. [Concomitant]
     Active Substance: HYDROCHLOROTHIAZIDE
  3. LINZESS [Suspect]
     Active Substance: LINACLOTIDE
     Indication: IRRITABLE BOWEL SYNDROME
     Route: 048
     Dates: start: 20140505
  4. CALAN SR (VERAPAMIL) [Concomitant]
  5. ZOCOR [Concomitant]
     Active Substance: SIMVASTATIN
  6. LORAZEPAM. [Concomitant]
     Active Substance: LORAZEPAM
  7. MONOPRIL (FOSINOPRIL SODIUM) [Concomitant]

REACTIONS (2)
  - Abdominal distension [None]
  - Flatulence [None]

NARRATIVE: CASE EVENT DATE: 20140505
